FAERS Safety Report 19205249 (Version 1)
Quarter: 2021Q2

REPORT INFORMATION
  Report Type: Spontaneous
  Country: US (occurrence: US)
  Receive Date: 20210430
  Receipt Date: 20210430
  Transmission Date: 20210717
  Serious: Yes (Hospitalization, Other)
  Sender: FDA-Public Use
  Company Number: None

PATIENT
  Age: 31 Year
  Sex: Female
  Weight: 81 kg

DRUGS (7)
  1. GABAPENTIN 100MG CAPSULE GENERIC FOR NEURONTIN NOR [Suspect]
     Active Substance: GABAPENTIN
     Indication: HERPES ZOSTER
     Dosage: ?          QUANTITY:1 CAPSULE(S);?
     Route: 048
     Dates: start: 20210426, end: 20210428
  2. MELATONIN [Concomitant]
     Active Substance: MELATONIN
  3. MEDICAL MARIJUANA [Concomitant]
     Active Substance: CANNABIS SATIVA SUBSP. INDICA TOP
  4. MULTIVITAMIN [Concomitant]
     Active Substance: VITAMINS
  5. ZOFRAN [Concomitant]
     Active Substance: ONDANSETRON HYDROCHLORIDE
  6. VENLAFAXINE [Concomitant]
     Active Substance: VENLAFAXINE HYDROCHLORIDE
  7. PANTOPRAZOLE [Concomitant]
     Active Substance: PANTOPRAZOLE

REACTIONS (8)
  - Vomiting [None]
  - Depression [None]
  - Exposure during pregnancy [None]
  - Anxiety [None]
  - Dyspnoea [None]
  - Diarrhoea [None]
  - Suicidal ideation [None]
  - Hyperhidrosis [None]

NARRATIVE: CASE EVENT DATE: 20210428
